FAERS Safety Report 24225315 (Version 1)
Quarter: 2024Q3

REPORT INFORMATION
  Report Type: Report from Study
  Country: US (occurrence: US)
  Receive Date: 20240820
  Receipt Date: 20240820
  Transmission Date: 20241017
  Serious: Yes (Other)
  Sender: UCB
  Company Number: US-UCBSA-2024041510

PATIENT
  Age: 0 Year
  Sex: Female
  Weight: 2.806 kg

DRUGS (3)
  1. BRIVARACETAM [Suspect]
     Active Substance: BRIVARACETAM
     Indication: Seizure
     Dosage: 300 MILLIGRAM (100 MILLIGRAM-1 TAB AM AND 200 MILLIGRAM PM)
     Route: 064
     Dates: start: 202309
  2. BRIVARACETAM [Suspect]
     Active Substance: BRIVARACETAM
     Dosage: 150 MILLIGRAM AM AND 200 MILLIGRAM AT PM
     Route: 064
     Dates: start: 202402
  3. BRIVARACETAM [Suspect]
     Active Substance: BRIVARACETAM
     Dosage: 200 MILLIGRAM, 2X/DAY (BID)
     Route: 064
     Dates: start: 202405, end: 20240601

REACTIONS (3)
  - Foetal growth restriction [Unknown]
  - Maternal exposure before pregnancy [Unknown]
  - Maternal exposure during pregnancy [Unknown]

NARRATIVE: CASE EVENT DATE: 20230901
